FAERS Safety Report 10761595 (Version 2)
Quarter: 2015Q1

REPORT INFORMATION
  Report Type: Spontaneous
  Country: JP (occurrence: JP)
  Receive Date: 20150204
  Receipt Date: 20150316
  Transmission Date: 20150721
  Serious: Yes (Hospitalization, Other)
  Sender: FDA-Public Use
  Company Number: JP-ELI_LILLY_AND_COMPANY-JP201501009389

PATIENT
  Age: 33 Year
  Sex: Female

DRUGS (2)
  1. HUMULIN R [Suspect]
     Active Substance: INSULIN HUMAN
     Indication: TYPE 1 DIABETES MELLITUS
     Dosage: 7-1-5-0 IU
     Route: 058
  2. LEVEMIR [Concomitant]
     Active Substance: INSULIN DETEMIR
     Indication: TYPE 1 DIABETES MELLITUS
     Dosage: 6-0-8-0 IU
     Route: 058

REACTIONS (5)
  - Diabetic nephropathy [Unknown]
  - Maternal exposure before pregnancy [Unknown]
  - Pre-eclampsia [Unknown]
  - Diabetes mellitus inadequate control [Unknown]
  - Maternal exposure during pregnancy [Unknown]
